FAERS Safety Report 9013417 (Version 2)
Quarter: 2013Q2

REPORT INFORMATION
  Report Type: Spontaneous
  Country: DE (occurrence: DE)
  Receive Date: 20130114
  Receipt Date: 20130415
  Transmission Date: 20140414
  Serious: Yes (Death, Hospitalization)
  Sender: FDA-Public Use
  Company Number: DE-NOVOPROD-368221

PATIENT
  Age: 70 Year
  Sex: Female
  Weight: 142 kg

DRUGS (11)
  1. VICTOZA [Suspect]
     Indication: TYPE 2 DIABETES MELLITUS
     Dosage: 0.6 MG, QD
     Route: 058
     Dates: start: 20121113
  2. METFORMIN HEXAL [Suspect]
     Indication: TYPE 2 DIABETES MELLITUS
     Dosage: 2000 MG, QD
     Route: 048
  3. TRENTAL [Concomitant]
     Dosage: 1200 MG, QD (START DATE BEFORE FEB-2011)
     Route: 048
  4. RAMIPRIL [Concomitant]
     Indication: HYPERTENSION
     Dosage: 5/25 (START DATE BEFORE FEB-2011)
     Route: 048
  5. SIMVASTATIN [Concomitant]
     Indication: HYPERCHOLESTEROLAEMIA
     Dosage: 20 (START DATE BEFORE FEB-2011)
     Route: 048
  6. SPIRO COMP [Concomitant]
     Indication: HYPERTENSION
     Dosage: 100/20 (START DATE BEFORE 07-NOV-2012)
     Route: 048
  7. BISOPROLOL [Concomitant]
     Indication: CARDIAC FAILURE
     Dosage: 2.5 MG, QD (START DATE BEFORE FEB-2011)
     Route: 048
  8. BISOPROLOL [Concomitant]
     Indication: ATRIAL FIBRILLATION
  9. TORASEMID [Concomitant]
     Indication: CARDIAC FAILURE
     Dosage: 20 MG, QD (START DATE BEFORE FEB-2011)
     Route: 048
  10. MARCUMAR [Concomitant]
     Indication: ATRIAL FIBRILLATION
     Dosage: 1 DF, QD (START DATE BEFORE FEB-2011)
     Route: 048
  11. OXYCODON [Concomitant]
     Indication: PAIN
     Dosage: 40 MG, QD (START DATE BEFORE FEB-2011)
     Route: 048

REACTIONS (5)
  - Lactic acidosis [Fatal]
  - Renal failure [Not Recovered/Not Resolved]
  - Dehydration [Unknown]
  - Diarrhoea [Unknown]
  - Nausea [Unknown]
